FAERS Safety Report 10059258 (Version 1)
Quarter: 2014Q2

REPORT INFORMATION
  Report Type: Spontaneous
  Country: US (occurrence: US)
  Receive Date: 20140404
  Receipt Date: 20140404
  Transmission Date: 20141212
  Serious: Yes (Other)
  Sender: FDA-Public Use
  Company Number: US-PFIZER INC-2014091930

PATIENT
  Sex: Male

DRUGS (1)
  1. CELEBREX [Suspect]
     Indication: ARTHRITIS
     Dosage: UNKNOWN DOSE DAILY

REACTIONS (4)
  - Spinal disorder [Unknown]
  - Nodule [Unknown]
  - Pain in extremity [Unknown]
  - Drug ineffective [Unknown]
